FAERS Safety Report 17433617 (Version 3)
Quarter: 2020Q4

REPORT INFORMATION
  Report Type: Report from Study
  Country: FR (occurrence: FR)
  Receive Date: 20200219
  Receipt Date: 20201127
  Transmission Date: 20210113
  Serious: Yes (Life-Threatening, Other)
  Sender: FDA-Public Use
  Company Number: FR-GLAXOSMITHKLINE-FR2020GSK024104

PATIENT
  Age: 61 Year
  Sex: Female
  Weight: 69 kg

DRUGS (24)
  1. PLACEBO [Suspect]
     Active Substance: UNSPECIFIED INGREDIENT
     Indication: OVARIAN CANCER
     Dosage: UNK
  2. BLINDED NIRAPARIB [Suspect]
     Active Substance: NIRAPARIB
     Dosage: 300 MG
     Dates: start: 20200205, end: 20200205
  3. CARBOPLATIN. [Suspect]
     Active Substance: CARBOPLATIN
     Indication: OVARIAN CANCER
     Dosage: 5 AUC
     Route: 042
     Dates: start: 20190717, end: 20190717
  4. BEVACIZUMAB. [Suspect]
     Active Substance: BEVACIZUMAB
     Dosage: 950 MG/KG
     Route: 042
     Dates: start: 20200116, end: 20200116
  5. BEVACIZUMAB. [Suspect]
     Active Substance: BEVACIZUMAB
     Dosage: UNK
     Route: 042
     Dates: start: 20200206, end: 20200206
  6. DOCETAXEL. [Concomitant]
     Active Substance: DOCETAXEL
  7. PLACEBO [Suspect]
     Active Substance: UNSPECIFIED INGREDIENT
     Indication: OVARIAN CANCER
     Dosage: UNK
  8. PLACEBO [Suspect]
     Active Substance: UNSPECIFIED INGREDIENT
     Dosage: UNK
     Dates: start: 20200206
  9. PLACEBO [Suspect]
     Active Substance: UNSPECIFIED INGREDIENT
     Dosage: UNK
     Dates: start: 20200206
  10. BLINDED DOSTARLIMAB [Suspect]
     Active Substance: DOSTARLIMAB
     Dosage: 300 MG
     Dates: start: 20200205, end: 20200205
  11. PLACEBO [Suspect]
     Active Substance: UNSPECIFIED INGREDIENT
     Dosage: 300 MG
     Dates: start: 20200205, end: 20200205
  12. PLACEBO [Suspect]
     Active Substance: UNSPECIFIED INGREDIENT
     Dosage: 300 MG
     Dates: start: 20200205, end: 20200205
  13. BLINDED NIRAPARIB [Suspect]
     Active Substance: NIRAPARIB
     Dosage: UNK
     Dates: start: 20200206
  14. DOSTARLIMAB/PLACEBO [Suspect]
     Active Substance: DOSTARLIMAB
     Indication: OVARIAN CANCER
     Dosage: 500 MG
     Dates: start: 20190807, end: 20190807
  15. DOSTARLIMAB/PLACEBO [Suspect]
     Active Substance: DOSTARLIMAB
     Dosage: UNK
     Dates: start: 20200206, end: 20200206
  16. CISPLATIN. [Concomitant]
     Active Substance: CISPLATIN
  17. BLINDED DOSTARLIMAB [Suspect]
     Active Substance: DOSTARLIMAB
     Indication: OVARIAN CANCER
     Dosage: UNK
  18. BLINDED DOSTARLIMAB [Suspect]
     Active Substance: DOSTARLIMAB
     Dosage: UNK
     Dates: start: 20200206
  19. CARBOPLATIN. [Suspect]
     Active Substance: CARBOPLATIN
     Dosage: 5 AUC
     Route: 042
     Dates: start: 20191204, end: 20191204
  20. PACLITAXEL. [Suspect]
     Active Substance: PACLITAXEL
     Indication: OVARIAN CANCER
     Dosage: 306 MG
     Route: 042
     Dates: start: 20190717, end: 20190717
  21. PACLITAXEL. [Suspect]
     Active Substance: PACLITAXEL
     Dosage: 282 MG
     Route: 042
     Dates: start: 20191204, end: 20191204
  22. DOSTARLIMAB/PLACEBO [Suspect]
     Active Substance: DOSTARLIMAB
     Dosage: 1000 MG
     Dates: start: 20191226, end: 20191226
  23. BEVACIZUMAB. [Suspect]
     Active Substance: BEVACIZUMAB
     Indication: OVARIAN CANCER
     Dosage: UNK
     Route: 042
  24. BLINDED NIRAPARIB [Suspect]
     Active Substance: NIRAPARIB
     Indication: OVARIAN CANCER
     Dosage: UNK

REACTIONS (1)
  - Thrombocytopenia [Recovered/Resolved]

NARRATIVE: CASE EVENT DATE: 20200204
